FAERS Safety Report 9611761 (Version 1)
Quarter: 2013Q4

REPORT INFORMATION
  Report Type: Spontaneous
  Country: US (occurrence: US)
  Receive Date: 20131010
  Receipt Date: 20131010
  Transmission Date: 20140711
  Serious: No
  Sender: FDA-Public Use
  Company Number: US-PFIZER INC-2013286738

PATIENT
  Age: 36 Year
  Sex: Female
  Weight: 61.22 kg

DRUGS (4)
  1. LYRICA [Suspect]
     Indication: FIBROMYALGIA
     Dosage: 50 MG, UNK
     Dates: start: 201304
  2. TOPAMAX [Suspect]
     Indication: FIBROMYALGIA
     Dosage: 100 MG, DAILY
     Dates: start: 2004
  3. TOPAMAX [Suspect]
     Indication: NEURALGIA
  4. ELAVIL [Concomitant]
     Indication: MIGRAINE
     Dosage: 25 MG, DAILY

REACTIONS (2)
  - Weight increased [Unknown]
  - Anaemia [Unknown]
